FAERS Safety Report 6882400-3 (Version None)
Quarter: 2010Q3

REPORT INFORMATION
  Report Type: 
  Country: None (occurrence: None)
  Receive Date: 20100729
  Receipt Date: 20090807
  Transmission Date: 20110219
  Serious: No
  Sender: FDA-Public Use
  Company Number: US-MYLANLABS-2009S1014133

PATIENT
  Age: 46 Year
  Sex: Female

DRUGS (6)
  1. TRIAMTERENE AND HYDROCHLOROTHIAZIDE [Suspect]
     Dosage: 37.5MG/25MG
     Route: 048
     Dates: end: 20090807
  2. TRIAMTERENE AND HYDROCHLOROTHIAZIDE [Suspect]
     Dosage: 37.5MG/25MG
     Route: 048
     Dates: end: 20090807
  3. TRIAMTERENE AND HYDROCHLOROTHIAZIDE [Suspect]
     Dosage: 37.5MG/25MG
     Route: 055
     Dates: start: 20090807, end: 20090807
  4. TRIAMTERENE AND HYDROCHLOROTHIAZIDE [Suspect]
     Dosage: 37.5MG/25MG
     Route: 055
     Dates: start: 20090807, end: 20090807
  5. TRIAMTERENE AND HYDROCHLOROTHIAZIDE [Suspect]
     Dosage: 37.5MG/25MG
     Route: 048
     Dates: start: 20090807
  6. TRIAMTERENE AND HYDROCHLOROTHIAZIDE [Suspect]
     Dosage: 37.5MG/25MG
     Route: 048
     Dates: start: 20090807

REACTIONS (2)
  - INCORRECT ROUTE OF DRUG ADMINISTRATION [None]
  - NO ADVERSE EVENT [None]
